FAERS Safety Report 8973327 (Version 1)
Quarter: 2012Q4

REPORT INFORMATION
  Report Type: 
  Country: US (occurrence: US)
  Receive Date: 20121218
  Receipt Date: 20121218
  Transmission Date: 20130627
  Serious: Yes (Other)
  Sender: FDA-Public Use
  Company Number: US-BRISTOL-MYERS SQUIBB COMPANY-16447146

PATIENT
  Age: 46 Year
  Sex: Female

DRUGS (7)
  1. ABILIFY [Suspect]
     Indication: BIPOLAR DISORDER
     Route: 048
     Dates: start: 20090120, end: 20110527
  2. VERAPAMIL [Concomitant]
  3. VITAMIN E [Concomitant]
  4. CYMBALTA [Concomitant]
  5. COGENTIN [Concomitant]
  6. PRISTIQ [Concomitant]
  7. WELLBUTRIN XL [Concomitant]

REACTIONS (1)
  - Dyskinesia [Unknown]
